FAERS Safety Report 17066712 (Version 1)
Quarter: 2019Q4

REPORT INFORMATION
  Report Type: Spontaneous
  Country: US (occurrence: US)
  Receive Date: 20191123
  Receipt Date: 20191123
  Transmission Date: 20200122
  Serious: No
  Sender: FDA-Public Use
  Company Number: US-IPSEN BIOPHARMACEUTICALS, INC.-2019-22886

PATIENT
  Age: 50 Year
  Sex: Female

DRUGS (5)
  1. SPIRONOLACTONE. [Concomitant]
     Active Substance: SPIRONOLACTONE
     Route: 048
  2. ESTROGEN [Concomitant]
     Active Substance: ESTROGENS
     Indication: MENOPAUSAL SYMPTOMS
     Route: 058
  3. TESTOSTERONE. [Concomitant]
     Active Substance: TESTOSTERONE
     Indication: MENOPAUSAL SYMPTOMS
     Route: 058
  4. PROGESTERONE. [Concomitant]
     Active Substance: PROGESTERONE
     Indication: MENOPAUSAL SYMPTOMS
     Route: 048
  5. DYSPORT [Suspect]
     Active Substance: ABOBOTULINUMTOXINA
     Indication: SKIN WRINKLING
     Route: 065
     Dates: start: 201908, end: 201908

REACTIONS (2)
  - Drug ineffective [Unknown]
  - Skin swelling [Recovered/Resolved]

NARRATIVE: CASE EVENT DATE: 201908
